FAERS Safety Report 9769578 (Version 1)
Quarter: 2013Q4

REPORT INFORMATION
  Report Type: Spontaneous
  Country: US (occurrence: None)
  Receive Date: 20131217
  Receipt Date: 20131217
  Transmission Date: 20140711
  Serious: Yes (Hospitalization)
  Sender: FDA-Public Use
  Company Number: None

PATIENT
  Age: 53 Year
  Sex: Male
  Weight: 114.75 kg

DRUGS (1)
  1. ALFA 2 INTERFERON 2 B [Suspect]
     Dosage: 240 MU
     Dates: start: 20120810

REACTIONS (4)
  - Cellulitis [None]
  - Hypokalaemia [None]
  - Blood creatine phosphokinase increased [None]
  - Fungal infection [None]
